FAERS Safety Report 16612719 (Version 3)
Quarter: 2019Q3

REPORT INFORMATION
  Report Type: Spontaneous
  Country: US (occurrence: US)
  Receive Date: 20190722
  Receipt Date: 20190829
  Transmission Date: 20191004
  Serious: No
  Sender: FDA-Public Use
  Company Number: US-B.I. PHARMACEUTICALS,INC./RIDGEFIELD-2019-US-000694

PATIENT
  Age: 79 Year
  Sex: Male

DRUGS (2)
  1. LASIX [Concomitant]
     Active Substance: FUROSEMIDE
     Indication: PRODUCT USED FOR UNKNOWN INDICATION
     Route: 065
  2. SPIRIVA RESPIMAT [Suspect]
     Active Substance: TIOTROPIUM BROMIDE
     Indication: CHRONIC OBSTRUCTIVE PULMONARY DISEASE
     Route: 065
     Dates: start: 20190524

REACTIONS (5)
  - Asthenia [Recovered/Resolved]
  - Poor quality sleep [Recovered/Resolved]
  - General physical condition [Unknown]
  - Dyspnoea [Recovered/Resolved with Sequelae]
  - Product quality issue [Unknown]

NARRATIVE: CASE EVENT DATE: 201906
